FAERS Safety Report 6739448-9 (Version None)
Quarter: 2010Q2

REPORT INFORMATION
  Report Type: 
  Country: None (occurrence: None)
  Receive Date: 20100519
  Receipt Date: 20091020
  Transmission Date: 20101027
  Serious: Yes (Hospitalization)
  Sender: FDA-Public Use
  Company Number: 2009PL000292

PATIENT
  Age: 54 Year
  Sex: Male

DRUGS (3)
  1. IMURAN [Suspect]
     Indication: CROHN'S DISEASE
     Dosage: 75 MG; BID
  2. HUMIRA [Suspect]
     Indication: CROHN'S DISEASE
     Dates: start: 20090901
  3. PREDNISONE (CON.) [Concomitant]

REACTIONS (2)
  - DIARRHOEA HAEMORRHAGIC [None]
  - DRUG INEFFECTIVE [None]
